FAERS Safety Report 14628315 (Version 1)
Quarter: 2018Q1

REPORT INFORMATION
  Report Type: Spontaneous
  Country: US (occurrence: US)
  Receive Date: 20180312
  Receipt Date: 20180312
  Transmission Date: 20180509
  Serious: No
  Sender: FDA-Public Use
  Company Number: US-ALLERGAN-1749314US

PATIENT
  Sex: Female

DRUGS (1)
  1. ESTRACE [Suspect]
     Active Substance: ESTRADIOL
     Indication: VAGINAL PESSARY INSERTION
     Dosage: UNK, BI-WEEKLY
     Route: 067
     Dates: start: 2017, end: 20170828

REACTIONS (6)
  - Abdominal distension [Unknown]
  - Haemorrhage [Unknown]
  - Muscle spasms [Unknown]
  - Headache [Unknown]
  - Off label use [Unknown]
  - Flatulence [Unknown]
